FAERS Safety Report 10374492 (Version 1)
Quarter: 2014Q1

REPORT INFORMATION
  Report Type: Spontaneous
  Country: US (occurrence: None)
  Receive Date: 20140306
  Receipt Date: 20140306
  Transmission Date: 20141002
  Serious: Yes (Other)
  Sender: FDA-Public Use
  Company Number: 163-21880-13010501

PATIENT
  Age: 80 Year
  Sex: Male
  Weight: 79.38 kg

DRUGS (11)
  1. REVLIMID (LENALIDOMIDE) (25 MILLIGRAM, CAPSULES) [Suspect]
     Indication: PLASMA CELL MYELOMA
     Dosage: 25 MG, 21 IN 21 D, PO
     Route: 048
     Dates: start: 20120928
  2. ANTIHISTAMINES (ANTIHISTAMINES) (UNKNOWN) [Concomitant]
  3. BABY ASPIRIN (ACETYLSALICYLIC ACID) (TABLETS) [Concomitant]
  4. CALCIUM (CALCIUM) (UNKNOWN) [Concomitant]
  5. CARVEDILOL (CARVEDILOL) (TABLETS) [Concomitant]
  6. COUMADIN (WARFARIN SODIUM) (TABLETS) [Concomitant]
  7. DEXAMETHASONE (DEXAMETHASONE) (UNKNOWN) [Concomitant]
  8. DITROPAN XL (OXYBUTYNIN HYDROCHLORIDE) (TABLETS) [Concomitant]
  9. FLUOCINONIDE (FLUOCINONIDE) (UNKNOWN) [Concomitant]
  10. GLUCOSAMINE CHONDROITIN (GLUCOSAMINE W/CHONDROITIN SULFATE) (UNKNOWN) [Concomitant]
  11. HYZAAR (HYZAAR) (TABLETS) [Concomitant]

REACTIONS (1)
  - Thrombosis [None]
